FAERS Safety Report 20318917 (Version 1)
Quarter: 2022Q1

REPORT INFORMATION
  Report Type: Report from Study
  Country: AR (occurrence: AR)
  Receive Date: 20220110
  Receipt Date: 20220110
  Transmission Date: 20220423
  Serious: Yes (Other)
  Sender: FDA-Public Use
  Company Number: AR-BRISTOL-MYERS SQUIBB COMPANY-BMS-2022-001478

PATIENT
  Age: 55 Year
  Sex: Male

DRUGS (1)
  1. NIVOLUMAB [Suspect]
     Active Substance: NIVOLUMAB
     Indication: Renal cancer
     Dosage: 480 MILLIGRAM, QMO
     Route: 042
     Dates: start: 20210611

REACTIONS (4)
  - Upper limb fracture [Not Recovered/Not Resolved]
  - Road traffic accident [Not Recovered/Not Resolved]
  - Liver function test increased [Unknown]
  - Weight increased [Unknown]

NARRATIVE: CASE EVENT DATE: 20211201
